FAERS Safety Report 7554172-0 (Version None)
Quarter: 2011Q2

REPORT INFORMATION
  Report Type: 
  Country: None (occurrence: None)
  Receive Date: 20110610
  Receipt Date: 20110526
  Transmission Date: 20111010
  Serious: Yes (Life-Threatening, Hospitalization, Other)
  Sender: FDA-Public Use
  Company Number: 2011MA005732

PATIENT
  Age: 35 Year
  Sex: Female

DRUGS (1)
  1. ACYCLOVIR [Suspect]
     Indication: MENINGOENCEPHALITIS HERPETIC
     Dosage: 30 MG/KG;OD;IV
     Route: 042

REACTIONS (5)
  - BRAIN OEDEMA [None]
  - CEREBRAL HAEMORRHAGE [None]
  - AMNESIA [None]
  - HEMIANOPIA HOMONYMOUS [None]
  - VASCULITIS CEREBRAL [None]
